FAERS Safety Report 15720490 (Version 1)
Quarter: 2018Q4

REPORT INFORMATION
  Report Type: Spontaneous
  Country: US (occurrence: US)
  Receive Date: 20181213
  Receipt Date: 20181213
  Transmission Date: 20190205
  Serious: Yes (Hospitalization, Other)
  Sender: FDA-Public Use
  Company Number: US-OTSUKA-2018_022377

PATIENT

DRUGS (2)
  1. ABILIFY [Suspect]
     Active Substance: ARIPIPRAZOLE
     Indication: PRODUCT USED FOR UNKNOWN INDICATION
     Dosage: UNK
     Route: 065
     Dates: start: 20110101, end: 20161220
  2. ABILIFY [Suspect]
     Active Substance: ARIPIPRAZOLE
     Dosage: UNK
     Route: 065
     Dates: start: 20150519, end: 20161001

REACTIONS (7)
  - Personal relationship issue [Unknown]
  - Economic problem [Unknown]
  - Mental disorder [Unknown]
  - Condition aggravated [Recovering/Resolving]
  - Obsessive-compulsive disorder [Unknown]
  - Suicide attempt [Unknown]
  - Gambling disorder [Unknown]

NARRATIVE: CASE EVENT DATE: 2012
